FAERS Safety Report 9798683 (Version 1)
Quarter: 2014Q1

REPORT INFORMATION
  Report Type: Spontaneous
  Country: US (occurrence: US)
  Receive Date: 20140106
  Receipt Date: 20140106
  Transmission Date: 20141002
  Serious: No
  Sender: FDA-Public Use
  Company Number: US-GILEAD-2010-0029722

PATIENT
  Age: 58 Year
  Sex: Female
  Weight: 87.7 kg

DRUGS (15)
  1. LETAIRIS [Suspect]
     Indication: PULMONARY ARTERIAL HYPERTENSION
     Route: 048
     Dates: start: 20090420
  2. BONIVA [Concomitant]
  3. CELLCEPT [Concomitant]
  4. COZAAR [Concomitant]
  5. MEDROL [Concomitant]
  6. LASIX [Concomitant]
  7. COUMADIN [Concomitant]
  8. REVATIO [Concomitant]
  9. K-DUR [Concomitant]
  10. ALLEGRA-D [Concomitant]
  11. PRILOSEC [Concomitant]
  12. CRESTOR [Concomitant]
  13. ZETIA [Concomitant]
  14. VESICARE [Concomitant]
  15. CYCLOSPORINE [Concomitant]

REACTIONS (1)
  - Anaemia [Recovering/Resolving]
